FAERS Safety Report 10482765 (Version 1)
Quarter: 2014Q3

REPORT INFORMATION
  Report Type: Spontaneous
  Country: US (occurrence: US)
  Receive Date: 20140929
  Receipt Date: 20140929
  Transmission Date: 20150326
  Serious: Yes (Other)
  Sender: FDA-Public Use
  Company Number: US-ASTRAZENECA-2014SE71190

PATIENT
  Sex: Female

DRUGS (1)
  1. SYMBICORT [Suspect]
     Active Substance: BUDESONIDE\FORMOTEROL FUMARATE DIHYDRATE
     Indication: CHRONIC OBSTRUCTIVE PULMONARY DISEASE
     Route: 055
     Dates: start: 1996

REACTIONS (6)
  - Respiratory disorder [Unknown]
  - Cataract [Unknown]
  - Vision blurred [Not Recovered/Not Resolved]
  - Cough [Unknown]
  - Hypertension [Recovering/Resolving]
  - Upper-airway cough syndrome [Unknown]

NARRATIVE: CASE EVENT DATE: 2013
